FAERS Safety Report 14179394 (Version 1)
Quarter: 2017Q4

REPORT INFORMATION
  Report Type: Spontaneous
  Country: US (occurrence: US)
  Receive Date: 20171110
  Receipt Date: 20171110
  Transmission Date: 20180321
  Serious: Yes (Other)
  Sender: FDA-Public Use
  Company Number: US-PFIZER INC-2017478758

PATIENT
  Age: 64 Year
  Sex: Female

DRUGS (1)
  1. CRIZOTINIB [Suspect]
     Active Substance: CRIZOTINIB
     Indication: NON-SMALL CELL LUNG CANCER
     Dosage: 250 MG, 2X/DAY
     Route: 048
     Dates: start: 20151214

REACTIONS (8)
  - Language disorder [Unknown]
  - Neoplasm progression [Unknown]
  - Incontinence [Unknown]
  - Seizure [Unknown]
  - Personality change [Unknown]
  - Dyspnoea exertional [Unknown]
  - Movement disorder [Unknown]
  - Abnormal behaviour [Unknown]
